FAERS Safety Report 13492776 (Version 3)
Quarter: 2017Q2

REPORT INFORMATION
  Report Type: Spontaneous
  Country: JP (occurrence: JP)
  Receive Date: 20170427
  Receipt Date: 20170503
  Transmission Date: 20170830
  Serious: Yes (Hospitalization)
  Sender: FDA-Public Use
  Company Number: JP-ROCHE-1925998

PATIENT
  Age: 52 Year
  Sex: Female

DRUGS (1)
  1. CEFTRIAXONE SODIUM. [Suspect]
     Active Substance: CEFTRIAXONE SODIUM
     Indication: COLITIS ISCHAEMIC
     Route: 042

REACTIONS (2)
  - Hepatic function abnormal [Recovered/Resolved]
  - Cholelithiasis [Recovered/Resolved]
